FAERS Safety Report 7217506-2 (Version None)
Quarter: 2011Q1

REPORT INFORMATION
  Report Type: 
  Country: None (occurrence: None)
  Receive Date: 20110110
  Receipt Date: 20101206
  Transmission Date: 20110831
  Serious: Yes (Hospitalization)
  Sender: FDA-Public Use
  Company Number: US-ACTELION-A-US2010-42398

PATIENT

DRUGS (2)
  1. ILOPROST INHALATION SOLUTION 20UG US [Suspect]
     Indication: PULMONARY ARTERIAL HYPERTENSION
     Dosage: UNK
     Route: 055
     Dates: start: 20100503, end: 20101203
  2. VIAGRA [Concomitant]

REACTIONS (4)
  - DYSPNOEA [None]
  - MELAENA [None]
  - SYNCOPE [None]
  - DIZZINESS [None]
